FAERS Safety Report 5707458-6 (Version None)
Quarter: 2008Q2

REPORT INFORMATION
  Report Type: 
  Country: None (occurrence: None)
  Receive Date: 20080416
  Receipt Date: 20080403
  Transmission Date: 20081010
  Serious: Yes (Death)
  Sender: FDA-Public Use
  Company Number: US-ELI_LILLY_AND_COMPANY-US200804001735

PATIENT
  Sex: Male

DRUGS (10)
  1. CYMBALTA [Suspect]
     Dosage: 120 MG, UNK
     Dates: start: 20071001, end: 20080331
  2. METHADONE HCL [Concomitant]
     Dosage: 1 D/F, UNK
  3. WELLBUTRIN SR [Concomitant]
     Dosage: 100 MG, 2/D
  4. ZONISAMIDE [Concomitant]
     Dosage: 200 MG, 2/D
  5. LISINOPRIL [Concomitant]
     Dosage: 10 MG, DAILY (1/D)
  6. AVANDAMET [Concomitant]
     Dosage: 1 D/F, 2/D
  7. TIZANIDINE HCL [Concomitant]
     Dosage: 4 MG, EACH EVENING
  8. OMEPRAZOLE [Concomitant]
     Dosage: 20 MG, DAILY (1/D)
  9. DOXEPIN HCL [Concomitant]
     Dosage: 10 MG, EACH EVENING
  10. COCAINE HYDROCHLORIDE [Concomitant]
     Dosage: 1 D/F, UNK

REACTIONS (1)
  - DEATH [None]
